FAERS Safety Report 18020657 (Version 1)
Quarter: 2020Q3

REPORT INFORMATION
  Report Type: Spontaneous
  Country: CN (occurrence: CN)
  Receive Date: 20200714
  Receipt Date: 20200714
  Transmission Date: 20201103
  Serious: Yes (Other)
  Sender: FDA-Public Use
  Company Number: CN-PFIZER INC-2020266658

PATIENT
  Age: 31 Year
  Sex: Female
  Weight: 62 kg

DRUGS (1)
  1. CYTOSAR [Suspect]
     Active Substance: CYTARABINE
     Indication: SYMPTOMATIC TREATMENT
     Dosage: 3.500 G, 1X/DAY
     Route: 041
     Dates: start: 20200529, end: 20200529

REACTIONS (2)
  - Xerophthalmia [Unknown]
  - Eye discharge [Unknown]

NARRATIVE: CASE EVENT DATE: 20200601
